FAERS Safety Report 19688282 (Version 3)
Quarter: 2022Q1

REPORT INFORMATION
  Report Type: Spontaneous
  Country: US (occurrence: US)
  Receive Date: 20210811
  Receipt Date: 20220331
  Transmission Date: 20220423
  Serious: No
  Sender: FDA-Public Use
  Company Number: US-BOEHRINGERINGELHEIM-2021-BI-120918

PATIENT
  Age: 59 Year
  Sex: Male

DRUGS (1)
  1. OFEV [Suspect]
     Active Substance: NINTEDANIB
     Indication: Product used for unknown indication
     Route: 048
     Dates: start: 20200916

REACTIONS (3)
  - Intentional underdose [Recovered/Resolved]
  - Vomiting [Recovered/Resolved]
  - Ageusia [Unknown]

NARRATIVE: CASE EVENT DATE: 20200916
